FAERS Safety Report 13939602 (Version 4)
Quarter: 2020Q2

REPORT INFORMATION
  Report Type: Spontaneous
  Country: US (occurrence: US)
  Receive Date: 20170906
  Receipt Date: 20200602
  Transmission Date: 20200713
  Serious: Yes (Hospitalization)
  Sender: FDA-Public Use
  Company Number: US-PFIZER INC-2017382631

PATIENT
  Age: 80 Year
  Sex: Female
  Weight: 55.33 kg

DRUGS (1)
  1. IBRANCE [Suspect]
     Active Substance: PALBOCICLIB
     Indication: BREAST CANCER METASTATIC
     Dosage: 125 MG, CYCLIC(ONCE A DAY, 21 DAYS ON, 7 DAYS OFF)
     Route: 048
     Dates: start: 2017

REACTIONS (21)
  - Depressed mood [Unknown]
  - Ocular hyperaemia [Not Recovered/Not Resolved]
  - Alopecia [Unknown]
  - Product dose omission [Unknown]
  - Pruritus [Not Recovered/Not Resolved]
  - Crying [Not Recovered/Not Resolved]
  - Eye irritation [Not Recovered/Not Resolved]
  - Nausea [Recovering/Resolving]
  - Influenza like illness [Recovering/Resolving]
  - Eye pain [Not Recovered/Not Resolved]
  - Neoplasm progression [Unknown]
  - Poor peripheral circulation [Unknown]
  - Skin discolouration [Unknown]
  - Aortic aneurysm [Unknown]
  - Eyelid margin crusting [Not Recovered/Not Resolved]
  - Skin atrophy [Unknown]
  - Dehydration [Recovering/Resolving]
  - Madarosis [Unknown]
  - Loose tooth [Unknown]
  - Vomiting [Recovering/Resolving]
  - Gait disturbance [Unknown]

NARRATIVE: CASE EVENT DATE: 201705
